FAERS Safety Report 6508501-7 (Version None)
Quarter: 2009Q4

REPORT INFORMATION
  Report Type: 
  Country: None (occurrence: None)
  Receive Date: 20091221
  Receipt Date: 20081124
  Transmission Date: 20100525
  Serious: No
  Sender: FDA-Public Use
  Company Number: US-ASTRAZENECA-2008UW26373

PATIENT
  Age: 59 Year
  Weight: 47.2 kg

DRUGS (7)
  1. CRESTOR [Suspect]
     Dosage: 5 MG
     Route: 048
     Dates: start: 20081101
  2. METOPROLOL SUCCINATE [Concomitant]
     Dosage: 100 MG
  3. ASPIRIN [Concomitant]
  4. XANAX [Concomitant]
  5. AMBIEN [Concomitant]
  6. COUMADIN [Concomitant]
  7. ANTIBIOTICS [Concomitant]

REACTIONS (3)
  - FEELING COLD [None]
  - INTERNATIONAL NORMALISED RATIO INCREASED [None]
  - NASOPHARYNGITIS [None]
